FAERS Safety Report 9416989 (Version 1)
Quarter: 2013Q3

REPORT INFORMATION
  Report Type: Spontaneous
  Country: US (occurrence: None)
  Receive Date: 20130722
  Receipt Date: 20130722
  Transmission Date: 20140515
  Serious: Yes (Other)
  Sender: FDA-Public Use
  Company Number: KAD201307-000809

PATIENT
  Age: 68 Year
  Sex: Female

DRUGS (1)
  1. ANASTROZOLE (ANASTROZOLE) [Suspect]
     Indication: BREAST CANCER

REACTIONS (1)
  - Chronic myeloid leukaemia [None]
